FAERS Safety Report 9304404 (Version 5)
Quarter: 2014Q3

REPORT INFORMATION
  Report Type: Spontaneous
  Country: US (occurrence: US)
  Receive Date: 20130522
  Receipt Date: 20140823
  Transmission Date: 20150326
  Serious: Yes (Hospitalization)
  Sender: FDA-Public Use
  Company Number: US-009507513-1305USA012346

PATIENT
  Sex: Female
  Weight: 77.98 kg

DRUGS (4)
  1. SINGULAIR [Concomitant]
     Active Substance: MONTELUKAST SODIUM
     Indication: ASTHMA
     Dosage: 5 MG, QD
     Route: 048
     Dates: start: 2000
  2. FLOVENT [Concomitant]
     Active Substance: FLUTICASONE PROPIONATE
     Indication: ASTHMA
     Dosage: UNK, BID
     Dates: start: 2005
  3. NUVARING [Suspect]
     Active Substance: ETHINYL ESTRADIOL\ETONOGESTREL
     Indication: CONTRACEPTION
     Dosage: UNK
     Route: 067
     Dates: start: 2007, end: 2011
  4. PROVENTIL [Concomitant]
     Active Substance: ALBUTEROL
     Indication: ASTHMA
     Dosage: UNK
     Dates: start: 1983

REACTIONS (32)
  - Irritability [Unknown]
  - Post thrombotic syndrome [Recovering/Resolving]
  - Skeletal injury [Unknown]
  - Menorrhagia [Unknown]
  - Asthenia [Unknown]
  - Dysstasia [Unknown]
  - Syncope [Unknown]
  - Sluggishness [Unknown]
  - Contusion [Unknown]
  - Limb discomfort [Recovered/Resolved]
  - Hysterectomy [Unknown]
  - Bladder disorder [Unknown]
  - Joint injury [Unknown]
  - Endometrial hyperplasia [Unknown]
  - Deep vein thrombosis [Unknown]
  - Muscle spasms [Unknown]
  - Fall [Unknown]
  - Face injury [Unknown]
  - Limb injury [Unknown]
  - Arthralgia [Unknown]
  - Polypectomy [Unknown]
  - Infection [Unknown]
  - Nervous system disorder [Unknown]
  - Gait disturbance [Unknown]
  - Stress urinary incontinence [Unknown]
  - Ovarian cystectomy [Unknown]
  - Fatigue [Unknown]
  - Gait disturbance [Unknown]
  - Periodic limb movement disorder [Unknown]
  - Amenorrhoea [Recovered/Resolved]
  - Candida infection [Unknown]
  - Adverse drug reaction [Recovered/Resolved]

NARRATIVE: CASE EVENT DATE: 2011
